FAERS Safety Report 16673717 (Version 1)
Quarter: 2019Q3

REPORT INFORMATION
  Report Type: Spontaneous
  Country: US (occurrence: US)
  Receive Date: 20190806
  Receipt Date: 20190806
  Transmission Date: 20191004
  Serious: No
  Sender: FDA-Public Use
  Company Number: US-GLAXOSMITHKLINE-US2019138364

PATIENT
  Age: 28 Year
  Sex: Male

DRUGS (2)
  1. FLONASE [Suspect]
     Active Substance: FLUTICASONE PROPIONATE
     Indication: MULTIPLE ALLERGIES
     Dosage: UNK
     Dates: start: 201907, end: 20190728
  2. FLONASE [Suspect]
     Active Substance: FLUTICASONE PROPIONATE
     Indication: LACRIMATION INCREASED

REACTIONS (1)
  - Drug ineffective [Unknown]
